FAERS Safety Report 26030780 (Version 1)
Quarter: 2025Q4

REPORT INFORMATION
  Report Type: Spontaneous
  Country: US (occurrence: US)
  Receive Date: 20251112
  Receipt Date: 20251112
  Transmission Date: 20260118
  Serious: No
  Sender: ROCHE
  Company Number: US-ROCHE-10000426608

PATIENT
  Sex: Female

DRUGS (2)
  1. XOLAIR [Suspect]
     Active Substance: OMALIZUMAB
     Indication: Product used for unknown indication
     Route: 058
  2. XOLAIR [Suspect]
     Active Substance: OMALIZUMAB

REACTIONS (7)
  - Device connection issue [Unknown]
  - No adverse event [Unknown]
  - Device issue [Unknown]
  - Wrong technique in device usage process [Unknown]
  - Accidental underdose [Unknown]
  - Exposure via skin contact [Unknown]
  - Syringe issue [Unknown]

NARRATIVE: CASE EVENT DATE: 20251031
